FAERS Safety Report 4816368-8 (Version None)
Quarter: 2005Q4

REPORT INFORMATION
  Report Type: 
  Country: None (occurrence: None)
  Receive Date: 20051028
  Receipt Date: 20051017
  Transmission Date: 20060501
  Serious: Yes (Hospitalization)
  Sender: FDA-Public Use
  Company Number: 2005144653

PATIENT
  Age: 51 Year
  Sex: Male
  Weight: 90 kg

DRUGS (7)
  1. SOLU-MEDROL [Suspect]
     Indication: ILL-DEFINED DISORDER
     Dosage: INTRAVENOUS
     Route: 042
     Dates: end: 20050913
  2. CAMPTOSAR [Suspect]
     Indication: RECTAL CANCER
     Dosage: 180 MG (1 D), INTRAVENOUS
     Route: 042
     Dates: start: 20050913, end: 20050913
  3. LEUCOVORIN CALCIUM [Suspect]
     Indication: RECTAL CANCER
     Dosage: 400 MG (1 D), INTRAVENOUS
     Route: 042
     Dates: end: 20050913
  4. FLUOROURACIL [Suspect]
     Indication: RECTAL CANCER
     Dosage: 2.8 GRAM (1 D), INTRAVENOUS
     Route: 042
     Dates: end: 20050915
  5. ATROPINE [Suspect]
     Indication: ILL-DEFINED DISORDER
     Dosage: 0.25 MG (1 D), INTRAVENOUS
     Route: 042
     Dates: start: 20050913, end: 20050913
  6. KYTRIL [Suspect]
     Indication: ILL-DEFINED DISORDER
     Dosage: INTRAVENOUS
     Route: 042
     Dates: end: 20050913
  7. POLARAMINE [Concomitant]

REACTIONS (11)
  - ECCHYMOSIS [None]
  - FLUSHING [None]
  - HAEMATURIA [None]
  - HAEMORRHAGE [None]
  - HYPERHIDROSIS [None]
  - HYPERTENSION [None]
  - PETECHIAE [None]
  - PRURITUS [None]
  - PURPURA [None]
  - TACHYCARDIA [None]
  - THROMBOCYTOPENIA [None]
